FAERS Safety Report 7853860-6 (Version None)
Quarter: 2011Q3

REPORT INFORMATION
  Report Type: 
  Country: None (occurrence: None)
  Receive Date: 20110901
  Receipt Date: 20101228
  Transmission Date: 20111222
  Serious: Yes (Disabling, Other)
  Sender: FDA-Public Use
  Company Number: 261461USA

PATIENT
  Sex: Female

DRUGS (2)
  1. METOCLOPRAMIDE [Suspect]
     Dates: start: 20041201, end: 20080401
  2. METOCLOPRAMIDE [Suspect]

REACTIONS (1)
  - DYSKINESIA [None]
